FAERS Safety Report 19631214 (Version 1)
Quarter: 2021Q3

REPORT INFORMATION
  Report Type: Spontaneous
  Country: FR (occurrence: FR)
  Receive Date: 20210729
  Receipt Date: 20210729
  Transmission Date: 20211014
  Serious: Yes (Death, Other)
  Sender: FDA-Public Use
  Company Number: FR-TAKEDA-2021TUS033837AA

PATIENT
  Age: 76 Year
  Sex: Female

DRUGS (21)
  1. DEXAMETHASONE. [Suspect]
     Active Substance: DEXAMETHASONE
     Indication: COVID-19
     Dosage: 6 MG, DAILY
     Route: 014
     Dates: start: 20210403, end: 20210406
  2. CEFEPIME [Suspect]
     Active Substance: CEFEPIME HYDROCHLORIDE
     Indication: PNEUMONIA PNEUMOCOCCAL
     Dosage: 4 GRAM, DAILY
     Route: 042
     Dates: start: 20210331, end: 20210406
  3. CORTANCYL [Concomitant]
     Active Substance: PREDNISONE
     Dosage: UNK
     Route: 065
  4. BACTRIM [Suspect]
     Active Substance: SULFAMETHOXAZOLE\TRIMETHOPRIM
     Indication: ANTIBIOTIC PROPHYLAXIS
     Dosage: 1 DOSAGE FORM, QD
     Route: 042
     Dates: start: 20210405, end: 20210406
  5. LOVENOX [Concomitant]
     Active Substance: ENOXAPARIN SODIUM
     Dosage: UNK
     Route: 065
  6. VALACICLOVIR [Suspect]
     Active Substance: VALACYCLOVIR HYDROCHLORIDE
     Indication: ANTIBIOTIC PROPHYLAXIS
     Dosage: 500 MILLIGRAM, QD
     Route: 048
     Dates: start: 20210405, end: 20210406
  7. VORICONAZOLE. [Suspect]
     Active Substance: VORICONAZOLE
     Indication: LUNG DISORDER
     Dosage: 400 MILLIGRAM, QD
     Route: 042
  8. SUFENTANIL [Suspect]
     Active Substance: SUFENTANIL
     Indication: SEDATION
     Dosage: 50 MILLIGRAM, DAILY
     Route: 042
     Dates: start: 20210405, end: 20210406
  9. CISATRACURIUM. [Suspect]
     Active Substance: CISATRACURIUM
     Indication: SEDATION
     Dosage: 500 MILLIGRAM, DAILY
     Route: 042
     Dates: start: 20210405, end: 20210406
  10. KARDEGIC [Concomitant]
     Active Substance: ASPIRIN DL-LYSINE
     Dosage: UNK
     Route: 065
  11. CRESTOR [Concomitant]
     Active Substance: ROSUVASTATIN CALCIUM
     Dosage: UNK
     Route: 065
  12. VALACICLOVIR [Suspect]
     Active Substance: VALACYCLOVIR HYDROCHLORIDE
     Dosage: 500 MILLIGRAM, QD
     Route: 048
  13. HYPERIUM [Concomitant]
     Active Substance: RILMENIDINE PHOSPHATE
     Dosage: UNK
     Route: 065
  14. EUPRESSYL [Suspect]
     Active Substance: URAPIDIL
     Indication: HYPERTENSION
     Dosage: 250 MILLIGRAM, QD
     Route: 065
  15. CALCIDOSE [Concomitant]
     Dosage: UNK
     Route: 065
  16. LASIX [Suspect]
     Active Substance: FUROSEMIDE
     Indication: ACUTE PULMONARY OEDEMA
     Dosage: 500 MILLIGRAM, QD
     Route: 042
     Dates: start: 20210405, end: 20210407
  17. MEROPENEM. [Suspect]
     Active Substance: MEROPENEM
     Indication: PRODUCT USED FOR UNKNOWN INDICATION
     Dosage: UNK
     Route: 065
  18. HEPARIN SODIUM. [Suspect]
     Active Substance: HEPARIN SODIUM
     Indication: PROPHYLAXIS
     Dosage: 25000 INTERNATIONAL UNIT, QD
     Route: 065
  19. PANTOPRAZOLE [Concomitant]
     Active Substance: PANTOPRAZOLE
     Dosage: UNK
     Route: 065
  20. ZAVICEFTA [Suspect]
     Active Substance: AVIBACTAM SODIUM\CEFTAZIDIME
     Indication: PRODUCT USED FOR UNKNOWN INDICATION
     Dosage: 4 GRAM, QD
     Route: 065
  21. ISOPTINE [Concomitant]
     Active Substance: VERAPAMIL HYDROCHLORIDE
     Dosage: UNK
     Route: 065

REACTIONS (6)
  - COVID-19 [Fatal]
  - Myoclonus [Unknown]
  - Encephalopathy [Fatal]
  - Multiple organ dysfunction syndrome [Unknown]
  - Toxic encephalopathy [Fatal]
  - Mixed liver injury [Unknown]

NARRATIVE: CASE EVENT DATE: 20210406
